FAERS Safety Report 5282527-6 (Version None)
Quarter: 2007Q1

REPORT INFORMATION
  Report Type: 
  Country: None (occurrence: None)
  Receive Date: 20070326
  Receipt Date: 20070314
  Transmission Date: 20070707
  Serious: Yes (Death, Hospitalization, Other)
  Sender: FDA-Public Use
  Company Number: 2006SP000065

PATIENT
  Age: 72 Year
  Sex: Female
  Weight: 63.5 kg

DRUGS (18)
  1. INTEGRILIN [Suspect]
     Indication: CORONARY ARTERIAL STENT INSERTION
     Dosage: SEE IMAGE
     Route: 042
     Dates: start: 20040818, end: 20040818
  2. LOVENOX [Suspect]
     Indication: MYOCARDIAL INFARCTION
     Dosage: 80 MG; ONCE; SC
     Route: 058
     Dates: start: 20040818, end: 20040818
  3. TENECTEPLASE [Suspect]
     Indication: MYOCARDIAL INFARCTION
     Dosage: 50 MG; ONCE; IV
     Route: 042
     Dates: start: 20040818, end: 20040818
  4. ASPIRIN [Suspect]
     Indication: MYOCARDIAL INFARCTION
     Dosage: 325 MG; ONCE;
     Dates: start: 20040818, end: 20040818
  5. PLAVIX [Suspect]
     Indication: MYOCARDIAL INFARCTION
     Dosage: 600 MG; ONCE;
     Dates: start: 20040818, end: 20040818
  6. SODIUM CHLORIDE [Concomitant]
  7. VERSED [Concomitant]
  8. FENTANYL [Concomitant]
  9. LOPRESSOR [Concomitant]
  10. LIPITOR [Concomitant]
  11. CAPTOPRIL [Concomitant]
  12. PAXIL [Concomitant]
  13. PROTONIX [Concomitant]
  14. NITROGLYCERIN [Concomitant]
  15. TYLENOL [Concomitant]
  16. AMBIEN [Concomitant]
  17. COLACE [Concomitant]
  18. DARVOCET-N 100 [Concomitant]

REACTIONS (31)
  - ACUTE MYOCARDIAL INFARCTION [None]
  - AORTIC ARTERIOSCLEROSIS [None]
  - AORTIC VALVE INCOMPETENCE [None]
  - ARTERIOSCLEROSIS CORONARY ARTERY [None]
  - ATELECTASIS [None]
  - BLOOD PRESSURE DECREASED [None]
  - BRADYCARDIA [None]
  - BRAIN HERNIATION [None]
  - BRONCHIOLITIS [None]
  - CARDIAC HYPERTROPHY [None]
  - CEREBRAL ARTERIOSCLEROSIS [None]
  - CEREBRAL HAEMORRHAGE [None]
  - CYSTIC FIBROSIS PANCREATIC [None]
  - DRUG INTOLERANCE [None]
  - GASTRIC DISORDER [None]
  - HEPATIC NECROSIS [None]
  - HEPATIC STEATOSIS [None]
  - HYPERPLASTIC CHOLECYSTOPATHY [None]
  - LEIOMYOMA [None]
  - MITRAL VALVE INCOMPETENCE [None]
  - NAUSEA [None]
  - NEPHROSCLEROSIS [None]
  - PAIN [None]
  - PLEURAL ADHESION [None]
  - PNEUMONIA [None]
  - PULMONARY OEDEMA [None]
  - RENAL CYST [None]
  - REPERFUSION ARRHYTHMIA [None]
  - SPINAL EPIDURAL HAEMORRHAGE [None]
  - SUBDURAL HAEMORRHAGE [None]
  - UTERINE LEIOMYOMA [None]
